FAERS Safety Report 4446541-2 (Version None)
Quarter: 2004Q3

REPORT INFORMATION
  Report Type: 
  Country: None (occurrence: None)
  Receive Date: 20040908
  Receipt Date: 20040820
  Transmission Date: 20050211
  Serious: Yes (Death, Hospitalization)
  Sender: FDA-Public Use
  Company Number: 2004229697SE

PATIENT
  Age: 70 Year
  Sex: Male

DRUGS (6)
  1. CAMPTOSAR [Suspect]
     Indication: SMALL CELL LUNG CANCER EXTENSIVE STAGE
     Dosage: 310 MG, CYCLIC, IV
     Route: 042
     Dates: start: 20040302, end: 20040302
  2. CARBOPLATIN [Suspect]
     Indication: SMALL CELL LUNG CANCER EXTENSIVE STAGE
     Dosage: 445 MG, CYCLIC, IV
     Route: 042
     Dates: start: 20040302, end: 20040302
  3. BETAPRED [Concomitant]
  4. PRIMPERAN INJ [Concomitant]
  5. ATROPINE [Concomitant]
  6. NAVOBAN (TROPISETRON HYDROCHLORIDE) [Concomitant]

REACTIONS (13)
  - BLOOD CREATINE PHOSPHOKINASE MB INCREASED [None]
  - BLOOD CREATININE INCREASED [None]
  - C-REACTIVE PROTEIN INCREASED [None]
  - DISEASE PROGRESSION [None]
  - DYSPNOEA [None]
  - ELECTROLYTE IMBALANCE [None]
  - GENERAL PHYSICAL HEALTH DETERIORATION [None]
  - HAEMOGLOBIN DECREASED [None]
  - METASTASES TO SPINE [None]
  - NEUTROPENIA [None]
  - NEUTROPHIL COUNT DECREASED [None]
  - SEPSIS [None]
  - WHITE BLOOD CELL COUNT DECREASED [None]
